FAERS Safety Report 19861044 (Version 1)
Quarter: 2021Q3

REPORT INFORMATION
  Report Type: Spontaneous
  Country: CA (occurrence: CA)
  Receive Date: 20210920
  Receipt Date: 20210920
  Transmission Date: 20211014
  Serious: Yes (Death, Other)
  Sender: FDA-Public Use
  Company Number: CA-PURDUE-USA-2021-0284686

PATIENT
  Age: 70 Year
  Sex: Male

DRUGS (5)
  1. THEOPHYLLINE ER TABLET (040086, 087571 RHODES) [Suspect]
     Active Substance: THEOPHYLLINE ANHYDROUS
     Indication: ASTHMA
     Dosage: 200.0 MG, DAILY (1 EVERY 1 DAYS)
     Route: 048
  2. MEPOLIZUMAB [Suspect]
     Active Substance: MEPOLIZUMAB
     Indication: ASTHMA
     Dosage: 100.0 MG, UNK
     Route: 058
  3. BUDESONIDE W/FORMOTEROL [Suspect]
     Active Substance: BUDESONIDE\FORMOTEROL
     Indication: ASTHMA
     Dosage: 1.0 DF, TID (3 EVERY 1 DAYS)
     Route: 055
  4. VENTOLIN [Suspect]
     Active Substance: ALBUTEROL SULFATE
     Indication: ASTHMA
     Route: 065
  5. PREDNISONE. [Suspect]
     Active Substance: PREDNISONE
     Indication: ASTHMA
     Dosage: 10.0 MG, DAILY (1 EVERY 1 DAYS)
     Route: 048

REACTIONS (3)
  - Death [Fatal]
  - Inappropriate schedule of product administration [Fatal]
  - Palliative care [Fatal]
